FAERS Safety Report 8014792-6 (Version None)
Quarter: 2011Q4

REPORT INFORMATION
  Report Type: 
  Country: None (occurrence: None)
  Receive Date: 20111229
  Receipt Date: 20111229
  Transmission Date: 20120403
  Serious: Yes (Life-Threatening, Other)
  Sender: FDA-Public Use
  Company Number: US-B.I. PHARMACEUTICALS,INC./RIDGEFIELD-2011-BP-28968BP

PATIENT
  Age: 22 Year
  Sex: Female

DRUGS (1)
  1. DULCOLAX [Suspect]
     Route: 048
     Dates: start: 20080101

REACTIONS (8)
  - QUALITY OF LIFE DECREASED [None]
  - UNDERWEIGHT [None]
  - ASTHENIA [None]
  - WEIGHT DECREASED [None]
  - CARDIAC DISORDER [None]
  - ELECTROLYTE IMBALANCE [None]
  - INTENTIONAL OVERDOSE [None]
  - VOMITING [None]
